FAERS Safety Report 14454397 (Version 1)
Quarter: 2018Q1

REPORT INFORMATION
  Report Type: Spontaneous
  Country: US (occurrence: US)
  Receive Date: 20180128
  Receipt Date: 20180128
  Transmission Date: 20180509
  Serious: No
  Sender: FDA-Public Use
  Company Number: None

PATIENT
  Sex: Female
  Weight: 91.8 kg

DRUGS (1)
  1. NEXPLANON [Suspect]
     Active Substance: ETONOGESTREL
     Indication: CONTRACEPTION
     Dosage: ?          QUANTITY:1 IMPLANT;OTHER FREQUENCY:ALWAYS IN;OTHER ROUTE:IMPLANTED IN ARM?
     Dates: start: 20171204

REACTIONS (2)
  - Abdominal pain [None]
  - Gait inability [None]

NARRATIVE: CASE EVENT DATE: 20180112
